FAERS Safety Report 8366219-2 (Version None)
Quarter: 2012Q2

REPORT INFORMATION
  Report Type: 
  Country: None (occurrence: None)
  Receive Date: 20120517
  Receipt Date: 20120507
  Transmission Date: 20120825
  Serious: Yes (Other)
  Sender: FDA-Public Use
  Company Number: PHEH2012US009609

PATIENT
  Sex: Male

DRUGS (2)
  1. TEGRETOL-XR [Suspect]
     Dosage: 100 MG, UNK
  2. TEGRETOL-XR [Suspect]
     Dosage: 400 MG, UNK

REACTIONS (2)
  - THROAT CANCER [None]
  - OROPHARYNGEAL DISCOMFORT [None]
